FAERS Safety Report 8880338 (Version 6)
Quarter: 2013Q2

REPORT INFORMATION
  Report Type: Report from Study
  Country: RU (occurrence: RU)
  Receive Date: 20121101
  Receipt Date: 20130412
  Transmission Date: 20140414
  Serious: Yes (Hospitalization)
  Sender: FDA-Public Use
  Company Number: PHHO2012RU015575

PATIENT
  Age: 7 Year
  Sex: Female
  Weight: 23.5 kg

DRUGS (6)
  1. ACZ885 [Suspect]
     Indication: JUVENILE IDIOPATHIC ARTHRITIS
     Dosage: 106.8 MG, UNK
     Route: 058
     Dates: start: 20121017, end: 20130109
  2. ACZ885 [Suspect]
     Dosage: 106.8 MG, UNK
     Dates: start: 20130312
  3. METHOTREXATE [Suspect]
     Indication: JUVENILE IDIOPATHIC ARTHRITIS
     Dosage: 10 MG, WEEKLY
     Route: 030
     Dates: end: 20130118
  4. BISOPROLOL [Suspect]
     Dosage: UNK
  5. CEFTRIAXONE [Suspect]
  6. FOLIC ACID [Concomitant]
     Indication: JUVENILE IDIOPATHIC ARTHRITIS
     Dosage: 1 MG, QD
     Route: 048

REACTIONS (5)
  - Bronchopneumonia [Recovered/Resolved]
  - Aspartate aminotransferase increased [Recovered/Resolved]
  - Alanine aminotransferase increased [Recovered/Resolved]
  - Dermatitis allergic [Recovered/Resolved]
  - Hepatitis toxic [Recovered/Resolved]
